FAERS Safety Report 13788079 (Version 2)
Quarter: 2019Q1

REPORT INFORMATION
  Report Type: Spontaneous
  Country: US (occurrence: US)
  Receive Date: 20170725
  Receipt Date: 20190223
  Transmission Date: 20190417
  Serious: No
  Sender: FDA-Public Use
  Company Number: US-JNJFOC-20170700238

PATIENT
  Age: 70 Year
  Sex: Female
  Weight: 52.16 kg

DRUGS (2)
  1. MOTRIN IB [Suspect]
     Active Substance: IBUPROFEN
     Route: 048
  2. MOTRIN IB [Suspect]
     Active Substance: IBUPROFEN
     Indication: PAIN IN EXTREMITY
     Route: 048
     Dates: start: 20170616

REACTIONS (4)
  - Skin laceration [Recovered/Resolved]
  - Product container issue [Unknown]
  - Product lot number issue [Unknown]
  - Incorrect dose administered [Recovered/Resolved]
